FAERS Safety Report 7237524 (Version 12)
Quarter: 2015Q4

REPORT INFORMATION
  Report Type: Spontaneous
  Country: CA (occurrence: CA)
  Receive Date: 20100105
  Receipt Date: 20151229
  Transmission Date: 20160305
  Serious: Yes (Other)
  Sender: FDA-Public Use
  Company Number: CA-ROCHE-GNE296438

PATIENT
  Age: 47 Year
  Sex: Male

DRUGS (20)
  1. ALVESCO [Concomitant]
     Active Substance: CICLESONIDE
     Indication: PRODUCT USED FOR UNKNOWN INDICATION
  2. XOLAIR [Suspect]
     Active Substance: OMALIZUMAB
     Indication: ASTHMA
     Route: 058
     Dates: start: 20071220
  3. SALMETEROL [Concomitant]
     Active Substance: SALMETEROL
     Indication: PRODUCT USED FOR UNKNOWN INDICATION
  4. VENTOLIN [Concomitant]
     Active Substance: ALBUTEROL SULFATE
     Route: 065
  5. XOLAIR [Suspect]
     Active Substance: OMALIZUMAB
     Route: 058
     Dates: start: 20150218
  6. FLONASE [Concomitant]
     Active Substance: FLUTICASONE PROPIONATE
  7. PREDNISONE. [Concomitant]
     Active Substance: PREDNISONE
     Route: 065
  8. XOLAIR [Suspect]
     Active Substance: OMALIZUMAB
     Route: 058
     Dates: start: 20130611
  9. XOLAIR [Suspect]
     Active Substance: OMALIZUMAB
     Route: 058
     Dates: start: 20141028
  10. SYMBICORT [Concomitant]
     Active Substance: BUDESONIDE\FORMOTEROL FUMARATE DIHYDRATE
  11. PREDNISONE. [Concomitant]
     Active Substance: PREDNISONE
     Dosage: 10 MG, Q2D
     Route: 065
  12. XOLAIR [Suspect]
     Active Substance: OMALIZUMAB
     Route: 058
     Dates: start: 20091123
  13. XOLAIR [Suspect]
     Active Substance: OMALIZUMAB
     Route: 058
     Dates: start: 20130422
  14. ZENHALE [Suspect]
     Active Substance: FORMOTEROL FUMARATE\MOMETASONE FUROATE
     Indication: PRODUCT USED FOR UNKNOWN INDICATION
     Route: 065
  15. XOLAIR [Suspect]
     Active Substance: OMALIZUMAB
     Route: 058
     Dates: start: 20091221
  16. XOLAIR [Suspect]
     Active Substance: OMALIZUMAB
     Route: 058
     Dates: start: 20140822
  17. PREDNISONE. [Concomitant]
     Active Substance: PREDNISONE
     Dosage: FOR 8 DAYS FOLLOWED BY 20MG FOR 6 DAYS.
     Route: 065
  18. SINGULAIR [Concomitant]
     Active Substance: MONTELUKAST SODIUM
  19. INFLUENZA VACCINE [Concomitant]
     Active Substance: INFLUENZA VIRUS VACCINE
     Indication: PRODUCT USED FOR UNKNOWN INDICATION
  20. ADVAIR HFA [Concomitant]
     Active Substance: FLUTICASONE PROPIONATE\SALMETEROL XINAFOATE
     Indication: PRODUCT USED FOR UNKNOWN INDICATION
     Dosage: 1 PUFF, BID, DOSE=1 PUFF, DAILY DOSE=2 PUFF
     Route: 065

REACTIONS (17)
  - Lipoma [Unknown]
  - Sputum discoloured [Unknown]
  - Asthma [Unknown]
  - Tonsillitis [Not Recovered/Not Resolved]
  - Ear infection [Recovered/Resolved]
  - Respiratory tract congestion [Unknown]
  - Nasopharyngitis [Unknown]
  - Hypoacusis [Unknown]
  - Oxygen saturation decreased [Unknown]
  - Productive cough [Unknown]
  - Malaise [Unknown]
  - Ear pruritus [Unknown]
  - Wheezing [Unknown]
  - Heart rate increased [Unknown]
  - Dyspnoea [Unknown]
  - Haemoptysis [Unknown]
  - Pulmonary function test decreased [Unknown]

NARRATIVE: CASE EVENT DATE: 201305
